FAERS Safety Report 10983903 (Version 1)
Quarter: 2015Q2

REPORT INFORMATION
  Report Type: Report from Study
  Country: CA (occurrence: CA)
  Receive Date: 20150403
  Receipt Date: 20150403
  Transmission Date: 20150821
  Serious: Yes (Other)
  Sender: FDA-Public Use
  Company Number: CA-JNJFOC-20150322320

PATIENT
  Age: 50 Year
  Sex: Male
  Weight: 97.7 kg

DRUGS (1)
  1. REMICADE [Suspect]
     Active Substance: INFLIXIMAB
     Indication: ANKYLOSING SPONDYLITIS
     Dosage: FOR 52 WEEKS
     Route: 042
     Dates: start: 20090528

REACTIONS (2)
  - Surgery [Unknown]
  - Back pain [Unknown]

NARRATIVE: CASE EVENT DATE: 2015
